FAERS Safety Report 9605489 (Version 3)
Quarter: 2013Q4

REPORT INFORMATION
  Report Type: Spontaneous
  Country: US (occurrence: US)
  Receive Date: 20131008
  Receipt Date: 20131030
  Transmission Date: 20140711
  Serious: No
  Sender: FDA-Public Use
  Company Number: US-PFIZER INC-2013283404

PATIENT
  Age: 68 Year
  Sex: Male
  Weight: 77.1 kg

DRUGS (6)
  1. SUTENT [Suspect]
     Indication: HEPATIC CANCER
     Dosage: 50 MG FOR 20 DAYS
     Dates: start: 20130811
  2. SUTENT [Suspect]
     Indication: BONE CANCER
     Dosage: 37.5 MG, UNK
     Dates: start: 20130909
  3. SUTENT [Suspect]
     Dosage: 25 MG, CYCLIC, FOR 28 DAYS
     Dates: start: 20131003
  4. LISINOPRIL [Concomitant]
     Indication: HYPERTENSION
     Dosage: UNK
  5. LISINOPRIL [Concomitant]
     Dosage: 40 MG, 1X/DAY
  6. HYDROCHLOROTHIAZIDE [Concomitant]
     Dosage: UNK

REACTIONS (11)
  - Off label use [Unknown]
  - Pain in extremity [Not Recovered/Not Resolved]
  - Skin reaction [Unknown]
  - Palmar-plantar erythrodysaesthesia syndrome [Unknown]
  - Arthralgia [Unknown]
  - Blood pressure abnormal [Not Recovered/Not Resolved]
  - Stomatitis [Not Recovered/Not Resolved]
  - Weight decreased [Unknown]
  - Blood count abnormal [Unknown]
  - Haemoglobin decreased [Unknown]
  - Oedema peripheral [Unknown]
